FAERS Safety Report 4964838-4 (Version None)
Quarter: 2006Q1

REPORT INFORMATION
  Report Type: 
  Country: None (occurrence: None)
  Receive Date: 20060331
  Receipt Date: 20060317
  Transmission Date: 20060701
  Serious: Yes (Hospitalization, Disabling)
  Sender: FDA-Public Use
  Company Number: 384554

PATIENT
  Age: 20 Year
  Sex: Female
  Weight: 65.8 kg

DRUGS (3)
  1. ACCUTANE [Suspect]
     Indication: ACNE
     Dosage: ORAL
     Route: 048
     Dates: start: 19991206, end: 20000515
  2. MINOCYCLINE HCL [Concomitant]
  3. ORTHO CYCLEN-21 [Concomitant]

REACTIONS (102)
  - ABDOMINAL PAIN [None]
  - ABDOMINAL PAIN UPPER [None]
  - ANOREXIA [None]
  - ANXIETY [None]
  - ASPARTATE AMINOTRANSFERASE DECREASED [None]
  - BACTERIAL INFECTION [None]
  - BATTERED WIFE [None]
  - BLOOD CREATININE DECREASED [None]
  - BLOOD SODIUM DECREASED [None]
  - BLOOD UREA DECREASED [None]
  - BLOOD URINE PRESENT [None]
  - BREAST ABSCESS [None]
  - CELLULITIS [None]
  - CHILLS [None]
  - COLITIS [None]
  - COLITIS ULCERATIVE [None]
  - CONSTIPATION [None]
  - CONTUSION [None]
  - CROHN'S DISEASE [None]
  - CRYING [None]
  - CSF PROTEIN INCREASED [None]
  - CYST [None]
  - DEHYDRATION [None]
  - DEPRESSED MOOD [None]
  - DERMAL CYST [None]
  - DERMATITIS CONTACT [None]
  - DIARRHOEA [None]
  - DIARRHOEA HAEMORRHAGIC [None]
  - DISCOMFORT [None]
  - DRUG INEFFECTIVE [None]
  - DRUG INTOLERANCE [None]
  - DYSURIA [None]
  - ESCHERICHIA INFECTION [None]
  - EYE PAIN [None]
  - FAECES DISCOLOURED [None]
  - FALL [None]
  - FLATULENCE [None]
  - GASTROENTERITIS [None]
  - GASTROENTERITIS VIRAL [None]
  - GASTROINTESTINAL DISORDER [None]
  - GASTROOESOPHAGEAL REFLUX DISEASE [None]
  - HAEMATOCHEZIA [None]
  - HAEMATOCRIT DECREASED [None]
  - HEADACHE [None]
  - HEART RATE INCREASED [None]
  - HEPATIC CYST [None]
  - HYPERPHAGIA [None]
  - HYPERSENSITIVITY [None]
  - INFLAMMATION [None]
  - INFLAMMATORY BOWEL DISEASE [None]
  - INGROWING NAIL [None]
  - INITIAL INSOMNIA [None]
  - INSOMNIA [None]
  - INTESTINAL HAEMORRHAGE [None]
  - IRRITABLE BOWEL SYNDROME [None]
  - JOINT SPRAIN [None]
  - LIMB INJURY [None]
  - LYMPHOCYTE COUNT DECREASED [None]
  - LYMPHOCYTE PERCENTAGE DECREASED [None]
  - MAJOR DEPRESSION [None]
  - MEAN CELL HAEMOGLOBIN INCREASED [None]
  - MEAN PLATELET VOLUME DECREASED [None]
  - MELAENA [None]
  - MELANOCYTIC NAEVUS [None]
  - MUCOUS STOOLS [None]
  - MULTI-ORGAN DISORDER [None]
  - MUSCLE STRAIN [None]
  - MUSCULOSKELETAL PAIN [None]
  - MUSCULOSKELETAL STIFFNESS [None]
  - MYOFASCIAL PAIN SYNDROME [None]
  - NAUSEA [None]
  - NEUTROPHIL COUNT INCREASED [None]
  - NEUTROPHIL PERCENTAGE INCREASED [None]
  - ORAL INTAKE REDUCED [None]
  - PAIN [None]
  - PARTNER STRESS [None]
  - PHARYNGOLARYNGEAL PAIN [None]
  - PHOTOPHOBIA [None]
  - POLLAKIURIA [None]
  - PRODUCTIVE COUGH [None]
  - PROTEIN URINE PRESENT [None]
  - PULMONARY CONGESTION [None]
  - PURULENCE [None]
  - RASH [None]
  - RECTAL HAEMORRHAGE [None]
  - RED BLOOD CELL COUNT DECREASED [None]
  - RED BLOOD CELL SEDIMENTATION RATE INCREASED [None]
  - RIB FRACTURE [None]
  - SCOLIOSIS [None]
  - SEBORRHOEIC KERATOSIS [None]
  - SENSATION OF PRESSURE [None]
  - SINUS TACHYCARDIA [None]
  - SKIN LESION EXCISION [None]
  - SOMNOLENCE [None]
  - SPINAL OSTEOARTHRITIS [None]
  - THROMBOSIS [None]
  - UPPER RESPIRATORY TRACT INFECTION [None]
  - URINE ANALYSIS ABNORMAL [None]
  - VENTRICULAR EXTRASYSTOLES [None]
  - VOMITING [None]
  - WEIGHT INCREASED [None]
  - WITHDRAWAL BLEED [None]
